FAERS Safety Report 20713820 (Version 2)
Quarter: 2022Q2

REPORT INFORMATION
  Report Type: Report from Study
  Country: IN (occurrence: IN)
  Receive Date: 20220415
  Receipt Date: 20220419
  Transmission Date: 20220721
  Serious: Yes (Hospitalization, Other)
  Sender: FDA-Public Use
  Company Number: IN-NOVARTISPH-NVSC2021IN147386

PATIENT
  Age: 61 Year
  Sex: Male

DRUGS (18)
  1. SIMULECT [Suspect]
     Active Substance: BASILIXIMAB
     Indication: Renal transplant
     Dosage: 20 MG
     Route: 065
     Dates: start: 20210604, end: 20210608
  2. TACROLIMUS [Concomitant]
     Active Substance: TACROLIMUS
     Indication: Product used for unknown indication
     Dosage: 2.5 MG, BID
     Route: 065
  3. TACROLIMUS [Concomitant]
     Active Substance: TACROLIMUS
     Dosage: 2 MG, BID
     Route: 065
  4. MYCOPHENOLATE MOFETIL [Concomitant]
     Active Substance: MYCOPHENOLATE MOFETIL
     Indication: Product used for unknown indication
     Dosage: UNK
     Route: 065
  5. PREDNISOLONE [Concomitant]
     Active Substance: PREDNISOLONE
     Indication: Product used for unknown indication
     Dosage: 25 MG, QD (10AM)
     Route: 065
  6. SEPTRA DS [Concomitant]
     Active Substance: SULFAMETHOXAZOLE\TRIMETHOPRIM
     Indication: Product used for unknown indication
     Dosage: 1 DOSAGE FORM, ALTERNATE DAY 10AM
     Route: 065
  7. AMLODIPINE BESYLATE [Concomitant]
     Active Substance: AMLODIPINE BESYLATE
     Indication: Product used for unknown indication
     Dosage: 5 MG, QD (8AM)
     Route: 065
  8. METOLAR [Concomitant]
     Indication: Product used for unknown indication
     Dosage: 25 MG, BID (8AM AND 8PM)
     Route: 065
  9. CLONEX [Concomitant]
     Indication: Product used for unknown indication
     Dosage: 0.5 MG, BED TIME (10PM)
     Route: 065
  10. PAN [Concomitant]
     Indication: Product used for unknown indication
     Dosage: 40 MG, QD (6AM)
     Route: 065
  11. LANTUS [Concomitant]
     Active Substance: INSULIN GLARGINE
     Indication: Product used for unknown indication
     Dosage: 20 UNITS AT 10AM AND 16 UNITS AT 10 PM
     Route: 058
  12. HALOPERIDOL [Concomitant]
     Active Substance: HALOPERIDOL
     Indication: Product used for unknown indication
     Dosage: 5 MG, BID
     Route: 065
  13. TAMSULOSIN HYDROCHLORIDE [Concomitant]
     Active Substance: TAMSULOSIN HYDROCHLORIDE
     Indication: Product used for unknown indication
     Dosage: 0.4 MG AT NIGHT
     Route: 065
  14. ACTRAPID [Concomitant]
     Active Substance: INSULIN HUMAN
     Indication: Product used for unknown indication
     Dosage: PREMEAL AS PER SLIDING SCALE VALUES ({150 NIL, 150-200 = 2 UNITS, 200-250 = 4 UNITS, 250-300 = 6 UNI
     Route: 058
  15. CANDID [Concomitant]
     Indication: Product used for unknown indication
     Dosage: UNK UNK, BID (MOUTH PAINT) (8AM AND 8 PM)
     Route: 065
  16. DOLO [Concomitant]
     Indication: Product used for unknown indication
     Dosage: 650 MG, BID
     Route: 065
  17. DOLO [Concomitant]
     Dosage: 650 MG, PRN (SOS)
     Route: 065
  18. ULTRACET [Concomitant]
     Active Substance: ACETAMINOPHEN\TRAMADOL HYDROCHLORIDE
     Indication: Product used for unknown indication
     Dosage: 0.5 DOSAGE FORM, PRN (SOS), IF PAIN
     Route: 065

REACTIONS (13)
  - Kidney transplant rejection [Not Recovered/Not Resolved]
  - Transplant rejection [Unknown]
  - Acute kidney injury [Unknown]
  - Drug abuse [Unknown]
  - Abdominal distension [Unknown]
  - Constipation [Unknown]
  - Metabolic acidosis [Unknown]
  - Disorientation [Unknown]
  - Peripheral swelling [Unknown]
  - Flatulence [Unknown]
  - Renal function test abnormal [Recovering/Resolving]
  - Urine output decreased [Recovering/Resolving]
  - Blood creatinine increased [Unknown]

NARRATIVE: CASE EVENT DATE: 20210613
